FAERS Safety Report 23406649 (Version 2)
Quarter: 2024Q1

REPORT INFORMATION
  Report Type: Spontaneous
  Country: CA (occurrence: CA)
  Receive Date: 20240116
  Receipt Date: 20240131
  Transmission Date: 20240410
  Serious: Yes (Other)
  Sender: FDA-Public Use
  Company Number: CA-BAYER-2024A002937

PATIENT
  Age: 44 Year
  Sex: Male

DRUGS (6)
  1. CLARITIN [Suspect]
     Active Substance: LORATADINE
     Indication: Multiple allergies
     Dosage: 10MG
     Dates: start: 20230531, end: 20231227
  2. CLARITIN [Suspect]
     Active Substance: LORATADINE
     Indication: Multiple allergies
     Dosage: 10MG
     Dates: end: 20240101
  3. DULOXETINE [Concomitant]
     Active Substance: DULOXETINE
     Indication: Adverse drug reaction
     Dosage: UNK
     Dates: start: 20140101
  4. DULOXETINE [Concomitant]
     Active Substance: DULOXETINE
     Indication: Depression
  5. GABAPENTIN [Concomitant]
     Active Substance: GABAPENTIN
     Indication: Adverse drug reaction
     Dosage: UNK
     Dates: start: 20150401
  6. LANSOPRAZOLE [Concomitant]
     Active Substance: LANSOPRAZOLE
     Indication: Adverse drug reaction
     Dosage: 30 MG, BID

REACTIONS (4)
  - Nausea [Not Recovered/Not Resolved]
  - Recalled product [Not Recovered/Not Resolved]
  - Anxiety disorder [None]
  - Recalled product administered [Not Recovered/Not Resolved]
